FAERS Safety Report 11552263 (Version 4)
Quarter: 2015Q4

REPORT INFORMATION
  Report Type: Report from Study
  Country: US (occurrence: US)
  Receive Date: 20150925
  Receipt Date: 20151007
  Transmission Date: 20160304
  Serious: Yes (Hospitalization, Other)
  Sender: FDA-Public Use
  Company Number: PHHY2015US114923

PATIENT
  Age: 64 Year
  Sex: Female

DRUGS (3)
  1. LUCENTIS [Suspect]
     Active Substance: RANIBIZUMAB
     Indication: DIABETIC RETINAL OEDEMA
     Dosage: 0.3 MG, (ONCE IN 4-6 WEEKS IN HER RIGHT EYE)
     Route: 031
     Dates: start: 201501
  2. DIOVAN [Interacting]
     Active Substance: VALSARTAN
     Indication: BLOOD PRESSURE ABNORMAL
     Route: 065
  3. BACTRIM DS [Interacting]
     Active Substance: SULFAMETHOXAZOLE\TRIMETHOPRIM
     Indication: INFECTION
     Dosage: 2 DF, QD
     Route: 048

REACTIONS (8)
  - Migraine [Not Recovered/Not Resolved]
  - Drug interaction [Unknown]
  - Tremor [Recovered/Resolved]
  - Infection [Recovered/Resolved]
  - Renal disorder [Not Recovered/Not Resolved]
  - Rash [Recovered/Resolved]
  - Cyst [Recovered/Resolved]
  - Blindness [Recovered/Resolved]

NARRATIVE: CASE EVENT DATE: 201506
